FAERS Safety Report 5930159-6 (Version None)
Quarter: 2008Q4

REPORT INFORMATION
  Report Type: 
  Country: None (occurrence: None)
  Receive Date: 20081009
  Receipt Date: 20080214
  Transmission Date: 20090506
  Serious: Yes (Other)
  Sender: FDA-Public Use
  Company Number: PHEH2008US01845

PATIENT
  Age: 46 Year
  Sex: Female
  Weight: 47.6 kg

DRUGS (3)
  1. ZOMETA [Suspect]
     Indication: BREAST CANCER METASTATIC
     Dosage: 4 MG, QMO, INTRAVENOUS
     Route: 042
     Dates: start: 20050929, end: 20080103
  2. TAXOTERE [Concomitant]
  3. HERCEPTIN [Concomitant]

REACTIONS (5)
  - ANAEMIA [None]
  - DISEASE PROGRESSION [None]
  - HAEMOGLOBIN DECREASED [None]
  - LYMPHADENOPATHY [None]
  - METASTASES TO LIVER [None]
